FAERS Safety Report 7812656-1 (Version None)
Quarter: 2011Q4

REPORT INFORMATION
  Report Type: 
  Country: None (occurrence: None)
  Receive Date: 20111013
  Receipt Date: 20111005
  Transmission Date: 20120403
  Serious: Yes (Hospitalization)
  Sender: FDA-Public Use
  Company Number: TW-BRISTOL-MYERS SQUIBB COMPANY-16047433

PATIENT
  Age: 81 Year
  Sex: Male

DRUGS (5)
  1. PLACEBO [Suspect]
     Indication: TYPE 2 DIABETES MELLITUS
  2. NITRATES [Concomitant]
  3. BLINDED: SAXAGLIPTIN [Suspect]
     Indication: TYPE 2 DIABETES MELLITUS
  4. ASPIRIN [Concomitant]
  5. NOVOMIX [Suspect]
     Indication: TYPE 2 DIABETES MELLITUS
     Dosage: STOPPED:29DEC10 RESTARTED:30IU 29DEC10-24JAN11 24JAN11 28IU

REACTIONS (1)
  - PANCREATITIS ACUTE [None]
